FAERS Safety Report 19363030 (Version 2)
Quarter: 2021Q2

REPORT INFORMATION
  Report Type: Spontaneous
  Country: US (occurrence: US)
  Receive Date: 20210603
  Receipt Date: 20210616
  Transmission Date: 20210717
  Serious: No
  Sender: FDA-Public Use
  Company Number: US-LUPIN PHARMACEUTICALS INC.-2021-07304

PATIENT
  Sex: Female

DRUGS (2)
  1. AZITHROMYCIN TABLETS, 250 MG [Suspect]
     Active Substance: AZITHROMYCIN
     Dosage: 250 MILLIGRAM, QD (250MG PER DAY FOR 4 DAYS)
     Route: 048
     Dates: start: 20210503, end: 20210506
  2. AZITHROMYCIN TABLETS, 250 MG [Suspect]
     Active Substance: AZITHROMYCIN
     Indication: SINUSITIS
     Dosage: 500 MILLIGRAM (INSTRUCTED TO TAKE 500MG ON THE FIRST DAY OF THE COURSE)
     Route: 048
     Dates: start: 20210502, end: 20210502

REACTIONS (2)
  - Sinusitis [Unknown]
  - Abdominal discomfort [Unknown]
